FAERS Safety Report 7386078-4 (Version None)
Quarter: 2011Q1

REPORT INFORMATION
  Report Type: 
  Country: None (occurrence: None)
  Receive Date: 20110329
  Receipt Date: 20110329
  Transmission Date: 20110831
  Serious: Yes (Life-Threatening, Hospitalization)
  Sender: FDA-Public Use
  Company Number: None

PATIENT
  Age: 75 Year
  Sex: Female
  Weight: 63.5036 kg

DRUGS (1)
  1. LEVAQUIN [Suspect]
     Indication: PNEUMONIA
     Dosage: 10 PILLS ONE A DAY 4 PILLS TAKEN
     Dates: start: 20110304

REACTIONS (7)
  - HALLUCINATION [None]
  - VOMITING [None]
  - MALAISE [None]
  - RASH GENERALISED [None]
  - HEART RATE INCREASED [None]
  - HEADACHE [None]
  - DIARRHOEA [None]
